FAERS Safety Report 24074770 (Version 3)
Quarter: 2024Q3

REPORT INFORMATION
  Report Type: Spontaneous
  Country: US (occurrence: US)
  Receive Date: 20240710
  Receipt Date: 20240802
  Transmission Date: 20241017
  Serious: No
  Sender: KARYOPHARM THERAPEUTICS
  Company Number: US-KARYOPHARM-2024KPT001285

PATIENT

DRUGS (3)
  1. XPOVIO [Suspect]
     Active Substance: SELINEXOR
     Indication: Plasma cell myeloma
     Dosage: 100 MG, WEEKLY
     Route: 048
     Dates: start: 20240703
  2. PROCHLORPERAZINE [Concomitant]
     Active Substance: PROCHLORPERAZINE
  3. DEXAMETHASONE [Concomitant]
     Active Substance: DEXAMETHASONE

REACTIONS (2)
  - Constipation [Not Recovered/Not Resolved]
  - Nausea [Not Recovered/Not Resolved]

NARRATIVE: CASE EVENT DATE: 20240701
